FAERS Safety Report 19957853 (Version 41)
Quarter: 2024Q1

REPORT INFORMATION
  Report Type: Spontaneous
  Country: CA (occurrence: CA)
  Receive Date: 20211015
  Receipt Date: 20240115
  Transmission Date: 20240410
  Serious: Yes (Hospitalization, Other)
  Sender: FDA-Public Use
  Company Number: CA-CELLTRION INC.-2021CA014025

PATIENT

DRUGS (40)
  1. INFLECTRA [Suspect]
     Active Substance: INFLIXIMAB-DYYB
     Indication: Crohn^s disease
     Dosage: 5 MG/KG 0, 2, 6, THEN EVERY 8 WEEKS
     Route: 042
     Dates: start: 20210909
  2. INFLECTRA [Suspect]
     Active Substance: INFLIXIMAB-DYYB
     Dosage: 5 MG/KG, WEEKS 0, 2 AND 6, THEN Q (EVERY) 8 WEEKS
     Route: 042
     Dates: start: 20210909, end: 20220405
  3. INFLECTRA [Suspect]
     Active Substance: INFLIXIMAB-DYYB
     Dosage: 5 MG/KG 0, 2, 6, THEN EVERY 8 WEEKS
     Route: 042
     Dates: start: 20210922
  4. INFLECTRA [Suspect]
     Active Substance: INFLIXIMAB-DYYB
     Dosage: 5 MG/KG 0, 2, 6, THEN EVERY 8 WEEKS
     Route: 042
     Dates: start: 20211019
  5. INFLECTRA [Suspect]
     Active Substance: INFLIXIMAB-DYYB
     Dosage: 5 MG/KG 0, 2, 6, THEN EVERY 8 WEEKS
     Route: 042
     Dates: start: 20211019
  6. INFLECTRA [Suspect]
     Active Substance: INFLIXIMAB-DYYB
     Dosage: 5 MG/KG 0, 2, 6, THEN EVERY 8 WEEKS
     Route: 042
     Dates: start: 20211214
  7. INFLECTRA [Suspect]
     Active Substance: INFLIXIMAB-DYYB
     Dosage: 5 MG/KG 0, 2, 6, THEN EVERY 8 WEEKS
     Route: 042
     Dates: start: 20220208
  8. INFLECTRA [Suspect]
     Active Substance: INFLIXIMAB-DYYB
     Dosage: 390 MG (5 MG/KG) 0, 2, 6, THEN EVERY 8 WEEKS
     Route: 042
     Dates: start: 20220405
  9. INFLECTRA [Suspect]
     Active Substance: INFLIXIMAB-DYYB
     Dosage: 5 MG/KG REINDUCTION WEEKS 0,2,6, THEN Q 4 WEEKS
     Route: 042
     Dates: start: 20220505
  10. INFLECTRA [Suspect]
     Active Substance: INFLIXIMAB-DYYB
     Dosage: 5 MG/KG REINDUCTION WEEKS 0,2,6, THEN Q4WEEKS
     Route: 042
     Dates: start: 20220519
  11. INFLECTRA [Suspect]
     Active Substance: INFLIXIMAB-DYYB
     Dosage: 5 MG/KG REINDUCTION WEEKS 0,2,6, THEN Q4WEEKS
     Route: 042
     Dates: start: 20220615
  12. INFLECTRA [Suspect]
     Active Substance: INFLIXIMAB-DYYB
     Dosage: 5 MG/KG, REINDUCTION WEEKS 0,2,6, THEN Q4WEEKS
     Route: 042
     Dates: start: 20220713
  13. INFLECTRA [Suspect]
     Active Substance: INFLIXIMAB-DYYB
     Dosage: 5 MG/KG, REINDUCTION WEEKS 0,2,6, THEN Q4WEEKS
     Route: 042
     Dates: start: 20220811
  14. INFLECTRA [Suspect]
     Active Substance: INFLIXIMAB-DYYB
     Dosage: 385 MG, REINDUCTION WEEKS 0,2,6, THEN Q4WEEKS
     Route: 042
     Dates: start: 20220907
  15. INFLECTRA [Suspect]
     Active Substance: INFLIXIMAB-DYYB
     Dosage: 5 MG/KG, REINDUCTION WEEKS 0,2,6, THEN Q4WEEKS
     Route: 042
     Dates: start: 20221102, end: 20221102
  16. INFLECTRA [Suspect]
     Active Substance: INFLIXIMAB-DYYB
     Dosage: 5 MG/KG, REINDUCTION WEEKS 0,2,6, THEN Q4WEEKS
     Route: 042
     Dates: start: 20221130
  17. INFLECTRA [Suspect]
     Active Substance: INFLIXIMAB-DYYB
     Dosage: 5 MG/KG, REINDUCTION WEEKS 0,2,6, THEN Q4WEEKS
     Route: 042
     Dates: start: 20221228
  18. INFLECTRA [Suspect]
     Active Substance: INFLIXIMAB-DYYB
     Dosage: 5 MG/KG, REINDUCTION WEEKS 0,2,6, THEN Q4WEEKS
     Route: 042
     Dates: start: 20230125
  19. INFLECTRA [Suspect]
     Active Substance: INFLIXIMAB-DYYB
     Dosage: 400 MG, EVERY 4 WEEKS
     Route: 042
     Dates: start: 20230222
  20. INFLECTRA [Suspect]
     Active Substance: INFLIXIMAB-DYYB
     Dosage: 385 MG, EVERY 4 WEEKS
     Route: 042
     Dates: start: 20230322
  21. INFLECTRA [Suspect]
     Active Substance: INFLIXIMAB-DYYB
     Dosage: 400 MG, EVERY 4 WEEKS
     Route: 042
     Dates: start: 20230419, end: 20230419
  22. INFLECTRA [Suspect]
     Active Substance: INFLIXIMAB-DYYB
     Dosage: 390 MG, EVERY 4 WEEKS
     Route: 042
     Dates: start: 20230517
  23. INFLECTRA [Suspect]
     Active Substance: INFLIXIMAB-DYYB
     Dosage: 380 MG, EVERY 4 WEEKS
     Route: 042
     Dates: start: 20230614
  24. INFLECTRA [Suspect]
     Active Substance: INFLIXIMAB-DYYB
     Dosage: 5 MG/KG, REINDUCTION WEEKS 0,2,6, THEN Q4WEEKS
     Route: 042
     Dates: start: 20230712
  25. INFLECTRA [Suspect]
     Active Substance: INFLIXIMAB-DYYB
     Dosage: 5 MG/KG, REINDUCTION WEEKS 0,2,6, THEN Q4WEEKS
     Route: 042
     Dates: start: 20230809
  26. INFLECTRA [Suspect]
     Active Substance: INFLIXIMAB-DYYB
     Dosage: 375 MG, REINDUCTION WEEKS 0,2,6, THEN Q4WEEKS
     Route: 042
     Dates: start: 20230906
  27. INFLECTRA [Suspect]
     Active Substance: INFLIXIMAB-DYYB
     Dosage: 370 MG AFTER 8 WEEKS
     Route: 042
     Dates: start: 20231101
  28. INFLECTRA [Suspect]
     Active Substance: INFLIXIMAB-DYYB
     Dosage: 380 MG (5 MG/KG) AFTER 8 WEEKS (REINDUCTION WEEKS 0,2,6, THEN Q4WEEKS)
     Route: 042
     Dates: start: 20231129
  29. INFLECTRA [Suspect]
     Active Substance: INFLIXIMAB-DYYB
     Dosage: 780 MG, EVERY 4 WEEKS
     Route: 042
     Dates: start: 20240103
  30. ROSUVASTATIN CALCIUM [Concomitant]
     Active Substance: ROSUVASTATIN CALCIUM
     Dosage: UNK
     Route: 065
  31. CORTISONE [Concomitant]
     Active Substance: CORTISONE
     Dosage: 1 DF
  32. PANTOPRAZOLE SODIUM [Concomitant]
     Active Substance: PANTOPRAZOLE SODIUM
     Dosage: UNK
  33. PANTOPRAZOLE SODIUM [Concomitant]
     Active Substance: PANTOPRAZOLE SODIUM
     Dosage: 1 DF
  34. PANTOPRAZOLE SODIUM [Concomitant]
     Active Substance: PANTOPRAZOLE SODIUM
     Dosage: 1 DF (DOSAGE NOT AVAILABLE)
     Route: 065
  35. PREDNISONE [Concomitant]
     Active Substance: PREDNISONE
     Dosage: UNK
     Dates: start: 20210512
  36. PREDNISONE [Concomitant]
     Active Substance: PREDNISONE
     Dosage: 1 DF
     Dates: start: 20210512
  37. PREDNISONE [Concomitant]
     Active Substance: PREDNISONE
     Dosage: 1 DF, DECREASING DOSE  DOSAGE NOT AVAILABLE
     Route: 065
     Dates: start: 20210512
  38. ROSUVASTATIN [Concomitant]
     Active Substance: ROSUVASTATIN
     Dosage: UNK, DOSAGE NOT AVAILABLE
     Route: 065
  39. ROSUVASTATIN [Concomitant]
     Active Substance: ROSUVASTATIN
     Dosage: 1 DF
  40. ROSUVASTATIN [Concomitant]
     Active Substance: ROSUVASTATIN
     Dosage: 1 DF (DOSAGE NOT AVAILABLE)
     Route: 065

REACTIONS (54)
  - Sialoadenitis [Unknown]
  - Pneumonia [Not Recovered/Not Resolved]
  - Hypokalaemia [Unknown]
  - Arthralgia [Not Recovered/Not Resolved]
  - Emotional distress [Unknown]
  - Insomnia [Unknown]
  - Drug ineffective [Unknown]
  - Drug level below therapeutic [Not Recovered/Not Resolved]
  - Condition aggravated [Not Recovered/Not Resolved]
  - Skin reaction [Recovered/Resolved]
  - Pruritus [Recovered/Resolved]
  - Malaise [Not Recovered/Not Resolved]
  - Asthenia [Not Recovered/Not Resolved]
  - Fatigue [Not Recovered/Not Resolved]
  - Nausea [Recovering/Resolving]
  - Headache [Recovered/Resolved]
  - Arthralgia [Recovered/Resolved]
  - Nasopharyngitis [Not Recovered/Not Resolved]
  - Rash pruritic [Not Recovered/Not Resolved]
  - Blood potassium abnormal [Unknown]
  - Constipation [Unknown]
  - Oropharyngeal pain [Recovered/Resolved]
  - Sleep disorder due to general medical condition, insomnia type [Not Recovered/Not Resolved]
  - Cough [Not Recovered/Not Resolved]
  - Pain [Not Recovered/Not Resolved]
  - Hyperhidrosis [Unknown]
  - Palpitations [Unknown]
  - COVID-19 [Recovered/Resolved]
  - Dizziness [Unknown]
  - Skin exfoliation [Not Recovered/Not Resolved]
  - Rash erythematous [Not Recovered/Not Resolved]
  - Abnormal faeces [Not Recovered/Not Resolved]
  - Pharyngitis bacterial [Recovered/Resolved]
  - Throat tightness [Not Recovered/Not Resolved]
  - Anal fissure [Recovered/Resolved]
  - Nasal congestion [Not Recovered/Not Resolved]
  - Eye pain [Not Recovered/Not Resolved]
  - Pain in jaw [Not Recovered/Not Resolved]
  - Productive cough [Not Recovered/Not Resolved]
  - Sinusitis [Not Recovered/Not Resolved]
  - Ear pain [Recovered/Resolved]
  - Bruxism [Recovered/Resolved]
  - Abdominal distension [Recovering/Resolving]
  - Decreased appetite [Recovering/Resolving]
  - Dry skin [Recovering/Resolving]
  - Alopecia [Recovering/Resolving]
  - Ear infection [Not Recovered/Not Resolved]
  - Tachycardia [Not Recovered/Not Resolved]
  - Ear infection [Recovered/Resolved]
  - Pyrexia [Recovered/Resolved]
  - Headache [Recovered/Resolved]
  - Off label use [Unknown]
  - Off label use [Unknown]
  - Intentional product use issue [Unknown]

NARRATIVE: CASE EVENT DATE: 20210101
